FAERS Safety Report 9353325 (Version 1)
Quarter: 2013Q2

REPORT INFORMATION
  Report Type: Report from Study
  Country: DE (occurrence: DE)
  Receive Date: 20130618
  Receipt Date: 20130618
  Transmission Date: 20140414
  Serious: Yes (Hospitalization, Other)
  Sender: FDA-Public Use
  Company Number: DE-BRISTOL-MYERS SQUIBB COMPANY-19015379

PATIENT
  Age: 75 Year
  Sex: Female
  Weight: 71 kg

DRUGS (6)
  1. CETUXIMAB [Suspect]
     Indication: HEAD AND NECK CANCER
     Dosage: 400MG/M2,ONCE ,LOADING DOSE?22FEB12-22FEB12
     Route: 042
     Dates: start: 20120222
  2. CISPLATIN [Suspect]
     Indication: HEAD AND NECK CANCER
     Dosage: FREQUENCY-DAY 1,WEEK 4,WEEK 8?RECENT DOSE-11APR12
     Route: 042
     Dates: start: 20120222
  3. DOCETAXEL [Suspect]
     Indication: HEAD AND NECK CANCER
     Dosage: DAY 1,WEEK 4,WEEK 8?RECENT DOSE-11APR12
     Route: 042
     Dates: start: 20120222
  4. LOSARTAN [Concomitant]
     Route: 048
  5. MAGNESIUM VERLA [Concomitant]
     Route: 048
  6. CALCIUM [Concomitant]
     Route: 048

REACTIONS (1)
  - Dysphagia [Recovered/Resolved]
